FAERS Safety Report 26070308 (Version 1)
Quarter: 2025Q4

REPORT INFORMATION
  Report Type: Spontaneous
  Country: US (occurrence: None)
  Receive Date: 20251120
  Receipt Date: 20251120
  Transmission Date: 20260117
  Serious: Yes (Hospitalization, Other)
  Sender: FDA-CTU
  Company Number: None

PATIENT
  Age: 89 Year
  Sex: Female

DRUGS (1)
  1. COLCHICINE [Suspect]
     Active Substance: COLCHICINE

REACTIONS (6)
  - Delirium [None]
  - Confusional state [None]
  - Muscular weakness [None]
  - Moaning [None]
  - Communication disorder [None]
  - Acute kidney injury [None]

NARRATIVE: CASE EVENT DATE: 20251115
